FAERS Safety Report 19051014 (Version 1)
Quarter: 2021Q1

REPORT INFORMATION
  Report Type: Spontaneous
  Country: US (occurrence: US)
  Receive Date: 20210324
  Receipt Date: 20210324
  Transmission Date: 20210420
  Serious: No
  Sender: FDA-Public Use
  Company Number: US-ALLERGAN-2024037US

PATIENT

DRUGS (2)
  1. CANASA [Suspect]
     Active Substance: MESALAMINE
     Indication: COLITIS ULCERATIVE
     Dosage: UNK UNK, SINGLE
     Route: 054
     Dates: start: 20200616, end: 20200616
  2. CANASA [Suspect]
     Active Substance: MESALAMINE
     Indication: MUCOSAL PROLAPSE SYNDROME

REACTIONS (3)
  - Off label use [Unknown]
  - Pain [Recovered/Resolved]
  - Discomfort [Recovered/Resolved]

NARRATIVE: CASE EVENT DATE: 20200616
